FAERS Safety Report 5234222-7 (Version None)
Quarter: 2007Q1

REPORT INFORMATION
  Report Type: 
  Country: None (occurrence: None)
  Receive Date: 20070207
  Receipt Date: 20070125
  Transmission Date: 20070707
  Serious: Yes (Death, Other)
  Sender: FDA-Public Use
  Company Number: A-US2007-14084

PATIENT
  Age: 57 Year
  Sex: Female

DRUGS (1)
  1. TRACLEER [Suspect]
     Indication: PULMONARY HYPERTENSION
     Dosage: 62.5 MG BID ORAL
     Route: 048
     Dates: start: 20061001, end: 20070113

REACTIONS (7)
  - BLOOD BILIRUBIN INCREASED [None]
  - CARDIAC FAILURE [None]
  - ELECTROMECHANICAL DISSOCIATION [None]
  - HYPOXIA [None]
  - LIVER FUNCTION TEST ABNORMAL [None]
  - PULMONARY HYPERTENSION [None]
  - RENAL FAILURE [None]
